FAERS Safety Report 9089115 (Version 1)
Quarter: 2013Q1

REPORT INFORMATION
  Report Type: Spontaneous
  Country: BR (occurrence: BR)
  Receive Date: 20130201
  Receipt Date: 20130201
  Transmission Date: 20140127
  Serious: Yes (Other)
  Sender: FDA-Public Use
  Company Number: PHHY2013BR008072

PATIENT
  Sex: Female
  Weight: 90 kg

DRUGS (4)
  1. DIOVAN TRIPLE [Suspect]
     Indication: HYPERTENSION
     Dosage: 2 DF (160/12.5/10MG) IN MORNING AND AT NIGHT
  2. CAPTOPRIL [Suspect]
     Indication: HYPERTENSION
     Dosage: 3 DF (25MG) DAILY
  3. GLIBENCLAMIDE [Concomitant]
     Indication: DIABETES MELLITUS
     Dosage: 3 DF, DAILY
  4. METFORMIN [Concomitant]
     Indication: DIABETES MELLITUS
     Dosage: 3 DF, DAILY

REACTIONS (1)
  - Breast cancer [Recovering/Resolving]
